FAERS Safety Report 19397509 (Version 1)
Quarter: 2021Q2

REPORT INFORMATION
  Report Type: Spontaneous
  Country: CA (occurrence: CA)
  Receive Date: 20210610
  Receipt Date: 20210610
  Transmission Date: 20210717
  Serious: Yes (Other)
  Sender: FDA-Public Use
  Company Number: CA-CELLTRION INC.-2021CA004039

PATIENT

DRUGS (6)
  1. INFLECTRA [Suspect]
     Active Substance: INFLIXIMAB-DYYB
     Dosage: 700 MG AT WEEK 0, WEEK 2 DOSES, TO BE ADMINISTERED 400 MG GOING FORWARD
     Route: 042
     Dates: start: 20210305
  2. INFLECTRA [Suspect]
     Active Substance: INFLIXIMAB-DYYB
     Dosage: 400 MG EVERY 8 WEEKS
     Route: 042
     Dates: start: 20210401
  3. MEZAVANT [Concomitant]
     Active Substance: MESALAMINE
     Dosage: 1 DF (DOSAGE INFORMATION FOR MEZAVANT NOT AVAILABLE)
     Route: 065
  4. PREDNISONE. [Concomitant]
     Active Substance: PREDNISONE
     Dosage: 1 DF (TAPERING)
     Route: 065
  5. INFLECTRA [Suspect]
     Active Substance: INFLIXIMAB-DYYB
     Indication: COLITIS ULCERATIVE
     Dosage: 700 MG AT WEEK 0, WEEK 2 DOSES, TO BE ADMINISTERED 400 MG GOING FORWARD
     Route: 042
     Dates: start: 20210216, end: 20210305
  6. INFLECTRA [Suspect]
     Active Substance: INFLIXIMAB-DYYB
     Dosage: 700 MG FOR WEEK 6 THEN 400 MG ONGOING, EVERY 8 WEEKS FOR 12 MONTHS
     Route: 042

REACTIONS (8)
  - Urticaria [Unknown]
  - Blood pressure decreased [Recovered/Resolved]
  - Aphthous ulcer [Not Recovered/Not Resolved]
  - Fatigue [Not Recovered/Not Resolved]
  - Noninfective gingivitis [Not Recovered/Not Resolved]
  - Rash macular [Not Recovered/Not Resolved]
  - Off label use [Unknown]
  - Nausea [Not Recovered/Not Resolved]

NARRATIVE: CASE EVENT DATE: 20210216
